FAERS Safety Report 23207201 (Version 1)
Quarter: 2023Q4

REPORT INFORMATION
  Report Type: Spontaneous
  Country: US (occurrence: US)
  Receive Date: 20231120
  Receipt Date: 20231120
  Transmission Date: 20240110
  Serious: No
  Sender: FDA-Public Use
  Company Number: US-BRACCO-2022US05631

PATIENT
  Sex: Female

DRUGS (3)
  1. LUMASON [Suspect]
     Active Substance: SULFUR HEXAFLUORIDE
     Indication: Stress echocardiogram
     Dosage: 3 ML, SINGLE
     Route: 042
     Dates: start: 20221219, end: 20221219
  2. LUMASON [Suspect]
     Active Substance: SULFUR HEXAFLUORIDE
     Indication: Stress echocardiogram
     Dosage: 3 ML, SINGLE
     Route: 042
     Dates: start: 20221219, end: 20221219
  3. LUMASON [Suspect]
     Active Substance: SULFUR HEXAFLUORIDE
     Indication: Stress echocardiogram
     Dosage: 3 ML, SINGLE
     Route: 042
     Dates: start: 20221219, end: 20221219

REACTIONS (3)
  - Pruritus [Unknown]
  - Lethargy [Unknown]
  - Hypotension [Unknown]

NARRATIVE: CASE EVENT DATE: 20221219
